FAERS Safety Report 9897231 (Version 1)
Quarter: 2014Q1

REPORT INFORMATION
  Report Type: Spontaneous
  Country: US (occurrence: US)
  Receive Date: 20140214
  Receipt Date: 20140214
  Transmission Date: 20141002
  Serious: No
  Sender: FDA-Public Use
  Company Number: US-DRREDDYS-USA/USA/14/0036768

PATIENT
  Age: 30 Year
  Sex: Male

DRUGS (1)
  1. OLANZAPINE FILM-COATED TABLET [Suspect]
     Indication: SCHIZOPHRENIA
     Route: 065
     Dates: start: 2011, end: 2012

REACTIONS (2)
  - Tooth discolouration [Recovering/Resolving]
  - Product substitution issue [Unknown]
